FAERS Safety Report 4862107-4 (Version None)
Quarter: 2005Q4

REPORT INFORMATION
  Report Type: 
  Country: None (occurrence: None)
  Receive Date: 20051221
  Receipt Date: 20051013
  Transmission Date: 20060501
  Serious: Yes (Other)
  Sender: FDA-Public Use
  Company Number: JP-BOEHRINGER INGELHEIM PHARMACEUTICALS, INC.-2005-DE-04312GD

PATIENT
  Age: 66 Year
  Sex: Male
  Weight: 57.6 kg

DRUGS (9)
  1. TELMISARTAN [Suspect]
     Indication: RENOVASCULAR HYPERTENSION
     Dates: start: 20031106, end: 20031112
  2. TELMISARTAN [Suspect]
     Dates: start: 20031113
  3. FUROSEMIDE [Suspect]
     Indication: RENOVASCULAR HYPERTENSION
  4. NIFEDIPINE [Suspect]
     Indication: RENOVASCULAR HYPERTENSION
  5. DOXAZOSIN [Suspect]
     Indication: RENOVASCULAR HYPERTENSION
  6. GUANABENZ [Suspect]
     Indication: RENOVASCULAR HYPERTENSION
  7. CARVEDILOL [Suspect]
     Indication: RENOVASCULAR HYPERTENSION
  8. ANTIBIOTIC [Concomitant]
     Indication: PNEUMONIA
  9. ANTIBIOTIC [Concomitant]
     Indication: URINARY TRACT INFECTION

REACTIONS (7)
  - BLOOD CREATINE INCREASED [None]
  - BLOOD PRESSURE SYSTOLIC INCREASED [None]
  - DIZZINESS [None]
  - HYPERTENSION [None]
  - PNEUMONIA [None]
  - REBOUND HYPERTENSION [None]
  - URINARY TRACT INFECTION [None]
